FAERS Safety Report 7384573 (Version 4)
Quarter: 2020Q3

REPORT INFORMATION
  Report Type: Spontaneous
  Country: DE (occurrence: DE)
  Receive Date: 20100512
  Receipt Date: 20200722
  Transmission Date: 20201103
  Serious: Yes (Life-Threatening, Hospitalization, Other)
  Sender: FDA-Public Use
  Company Number: DE-JNJFOC-20100502915

PATIENT
  Age: 27 Year
  Sex: Female
  Weight: 78 kg

DRUGS (6)
  1. LACOSAMIDE. [Suspect]
     Active Substance: LACOSAMIDE
     Dosage: 300 MILLIGRAM, BID, IN BOTH THE EXTENSION STUDY AND THE INTRAVENOUS STUDY
     Route: 065
  2. ZONISAMIDE. [Suspect]
     Active Substance: ZONISAMIDE
     Indication: SUICIDE ATTEMPT
     Dosage: SINGLE
     Route: 048
     Dates: start: 200604
  3. LACOSAMIDE. [Suspect]
     Active Substance: LACOSAMIDE
     Indication: AUTONOMIC SEIZURE
     Route: 048
     Dates: start: 200604
  4. TOPAMAX [Suspect]
     Active Substance: TOPIRAMATE
     Indication: SUICIDE ATTEMPT
     Dosage: SINGLE
     Route: 048
     Dates: start: 200604
  5. LACOSAMIDE. [Suspect]
     Active Substance: LACOSAMIDE
     Indication: SUICIDE ATTEMPT
     Dosage: 200 MILLIGRAM, QD IN REGULATORY TRIAL (SP755)
     Route: 042
     Dates: start: 2005
  6. GABAPENTIN. [Suspect]
     Active Substance: GABAPENTIN
     Indication: SUICIDE ATTEMPT
     Dosage: SINGLE
     Route: 048
     Dates: start: 200604

REACTIONS (13)
  - Encephalopathy [Unknown]
  - Intentional overdose [Recovered/Resolved]
  - Pneumonia aspiration [Recovered/Resolved]
  - Generalised tonic-clonic seizure [Recovered/Resolved]
  - Pyrexia [Unknown]
  - Coma [Recovered/Resolved]
  - Hypotension [Recovered/Resolved]
  - White blood cell count increased [Unknown]
  - Acidosis [Unknown]
  - Suicide attempt [Unknown]
  - Vomiting [Unknown]
  - Electrocardiogram PR prolongation [Recovered/Resolved]
  - Blood potassium decreased [Unknown]

NARRATIVE: CASE EVENT DATE: 200604
